FAERS Safety Report 14779828 (Version 1)
Quarter: 2018Q2

REPORT INFORMATION
  Report Type: Spontaneous
  Country: GB (occurrence: IT)
  Receive Date: 20180419
  Receipt Date: 20180419
  Transmission Date: 20180711
  Serious: Yes (Life-Threatening)
  Sender: FDA-Public Use
  Company Number: IT-FRESENIUS KABI-FK201804576

PATIENT
  Age: 63 Year
  Sex: Female
  Weight: 78 kg

DRUGS (4)
  1. ROCURONIUMBROMID KABI 10 MG/ML [Suspect]
     Active Substance: ROCURONIUM BROMIDE
     Indication: ANAESTHESIA
     Route: 042
     Dates: start: 20180308, end: 20180308
  2. MIDAZOLAM ACCORD [Concomitant]
     Indication: ANAESTHESIA
     Route: 042
  3. PROPOFOL (MANUFACTURER UNKNOWN) [Suspect]
     Active Substance: PROPOFOL
     Indication: ANAESTHESIA
     Route: 042
     Dates: start: 20180308, end: 20180308
  4. FENTANEST [Suspect]
     Active Substance: FENTANYL CITRATE
     Indication: ANAESTHESIA
     Route: 042
     Dates: start: 20180308, end: 20180308

REACTIONS (1)
  - Anaphylactic shock [Recovered/Resolved]

NARRATIVE: CASE EVENT DATE: 20180308
